FAERS Safety Report 4565229-0 (Version None)
Quarter: 2005Q1

REPORT INFORMATION
  Report Type: 
  Country: None (occurrence: None)
  Receive Date: 20050131
  Receipt Date: 20050117
  Transmission Date: 20050727
  Serious: Yes (Hospitalization, Other)
  Sender: FDA-Public Use
  Company Number: US-GLAXOSMITHKLINE-A0540884A

PATIENT
  Age: 71 Year
  Sex: Female
  Weight: 80 kg

DRUGS (7)
  1. ECOTRIN REGULAR STRENGTH TABLETS [Suspect]
     Indication: PROPHYLAXIS
     Route: 048
     Dates: start: 19980101
  2. PLAVIX [Concomitant]
     Indication: THROMBOSIS
     Route: 048
  3. ALTACE [Concomitant]
     Indication: HYPERTENSION
     Route: 048
  4. SYNTHROID [Concomitant]
     Indication: HYPOTHYROIDISM
     Route: 048
  5. LIPITOR [Concomitant]
     Indication: BLOOD CHOLESTEROL INCREASED
     Route: 048
  6. FUROSEMIDE [Concomitant]
     Indication: FLUID RETENTION
     Route: 048
  7. TOPROL-XL [Concomitant]
     Indication: HYPERTENSION
     Route: 048

REACTIONS (10)
  - ANGINA PECTORIS [None]
  - ARTHRALGIA [None]
  - ATRIOVENTRICULAR BLOCK [None]
  - CARDIAC FAILURE CONGESTIVE [None]
  - COUGH [None]
  - DYSPEPSIA [None]
  - DYSPHAGIA [None]
  - MUSCULOSKELETAL STIFFNESS [None]
  - MYOCARDIAL INFARCTION [None]
  - PAIN IN JAW [None]
